FAERS Safety Report 19061850 (Version 1)
Quarter: 2021Q1

REPORT INFORMATION
  Report Type: Spontaneous
  Country: US (occurrence: US)
  Receive Date: 20210325
  Receipt Date: 20210325
  Transmission Date: 20210420
  Serious: Yes (Other)
  Sender: FDA-Public Use
  Company Number: None

PATIENT
  Age: 35 Year
  Sex: Male
  Weight: 83.5 kg

DRUGS (1)
  1. HEPARIN [Suspect]
     Active Substance: HEPARIN SODIUM
     Indication: EMBOLISM VENOUS
     Dosage: ?          OTHER FREQUENCY:CONTINUOUS;?
     Route: 041
     Dates: start: 20210321, end: 20210323

REACTIONS (1)
  - Drug level below therapeutic [None]

NARRATIVE: CASE EVENT DATE: 20210323
